FAERS Safety Report 6598728-0 (Version None)
Quarter: 2010Q1

REPORT INFORMATION
  Report Type: 
  Country: None (occurrence: None)
  Receive Date: 20100224
  Receipt Date: 20100210
  Transmission Date: 20100710
  Serious: Yes (Hospitalization, Other)
  Sender: FDA-Public Use
  Company Number: AT-TYCO HEALTHCARE/MALLINCKRODT-T201000619

PATIENT
  Age: 72 Year
  Sex: Female

DRUGS (1)
  1. FENTANYL-100 [Suspect]
     Indication: PAIN
     Dosage: 100 UG / 72 HOURS

REACTIONS (5)
  - BREAKTHROUGH PAIN [None]
  - CLOSTRIDIUM DIFFICILE COLITIS [None]
  - CONSTIPATION [None]
  - NARCOTIC INTOXICATION [None]
  - RENAL FAILURE ACUTE [None]
